FAERS Safety Report 7832334-2 (Version None)
Quarter: 2011Q4

REPORT INFORMATION
  Report Type: 
  Country: None (occurrence: None)
  Receive Date: 20111022
  Receipt Date: 20110426
  Transmission Date: 20120403
  Serious: Yes (Death, Life-Threatening, Hospitalization, Other)
  Sender: FDA-Public Use
  Company Number: KR-BAYER-2011-009896

PATIENT
  Age: 48 Year
  Sex: Male
  Weight: 67 kg

DRUGS (141)
  1. MEK INHIBITOR (DIHYDROXYPROP-DIFLU-METHOXYPHEN-CYCLOPROPA-SULFAMI) [Suspect]
     Dosage: 50 MG, QD
     Route: 048
     Dates: start: 20110224, end: 20110224
  2. SORAFENIB (RAF KINASE INHIBITOR) [Suspect]
     Indication: HEPATIC NEOPLASM MALIGNANT
     Dosage: 200 MG, QD
     Route: 048
     Dates: start: 20101230, end: 20101230
  3. SORAFENIB (RAF KINASE INHIBITOR) [Suspect]
     Dosage: 200 MG, QD
     Route: 048
     Dates: start: 20110103, end: 20110103
  4. SORAFENIB (RAF KINASE INHIBITOR) [Suspect]
     Dosage: 400 MG, BID
     Route: 048
     Dates: start: 20110128, end: 20110128
  5. SORAFENIB (RAF KINASE INHIBITOR) [Suspect]
  6. ALBIS [Concomitant]
     Dosage: 50 MG, QD
     Route: 042
     Dates: start: 20110215, end: 20110215
  7. TRAMACET [PARACETAMOL,TRAMADOL] [Concomitant]
     Dosage: 37.5 MG, BID
     Route: 048
     Dates: start: 20101217, end: 20101217
  8. MULTI-VITAMINS [Concomitant]
     Dosage: 1 DF, QD
     Route: 048
     Dates: start: 20101217, end: 20101219
  9. PANTOPRAZOLE SODIUM [Concomitant]
     Indication: OESOPHAGITIS
     Dosage: 40 MG, QD
     Route: 042
     Dates: start: 20101204, end: 20101211
  10. PANTOPRAZOLE SODIUM [Concomitant]
     Indication: NAUSEA
     Dosage: 20 MG, QD
     Route: 042
     Dates: start: 20110113, end: 20110128
  11. TYLENOL EXTENDED RELIEF [Concomitant]
     Indication: HEADACHE
     Dosage: 1300 MG, QD
     Route: 048
     Dates: start: 20101212, end: 20101213
  12. FENTANYL CITRATE [Concomitant]
     Indication: SURGERY
     Dosage: 0.1 MG, QD
     Route: 042
     Dates: start: 20101215, end: 20101215
  13. BROMEL [Concomitant]
     Dosage: 2.2 ML, TID
     Route: 042
     Dates: start: 20101216, end: 20101216
  14. ACETYLCYSTEINE [Concomitant]
     Dosage: 2 ML, TID
     Route: 042
     Dates: start: 20101216, end: 20101216
  15. ROCURONIUM BROMIDE [Concomitant]
     Indication: SURGERY
     Dosage: 50 MG, QD
     Route: 042
     Dates: start: 20101215, end: 20101215
  16. GLAMIN [Concomitant]
     Indication: MEDICAL DIET
     Dosage: 500 ML, QD
     Route: 042
     Dates: start: 20101216, end: 20101216
  17. NORVASC [Concomitant]
     Dosage: 5 MG, QD
     Route: 048
     Dates: start: 20110113, end: 20110128
  18. DUPHALAC [Concomitant]
     Indication: HEPATIC FAILURE
     Dosage: 15 ML, Q2HR
     Route: 054
     Dates: start: 20110426, end: 20110430
  19. NORMIX [Concomitant]
     Dosage: 400 MG, Q2HR
     Route: 054
     Dates: start: 20110426, end: 20110427
  20. CARVEDILOL [Concomitant]
     Indication: HYPERTENSION
     Dosage: 12.5 MG, UNK
     Dates: start: 20110207
  21. MORPHINE SULFATE [Concomitant]
     Indication: LIVER CARCINOMA RUPTURED
     Dosage: 5 MG, QD
     Route: 042
     Dates: start: 20110215
  22. KALIMATE [Concomitant]
     Indication: HYPERKALAEMIA
     Dosage: 10 G, TID
     Route: 054
     Dates: start: 20110414, end: 20110427
  23. KALIMATE [Concomitant]
     Indication: HEPATIC FAILURE
     Dosage: 10 G, Q2HR
     Route: 054
     Dates: start: 20110426, end: 20110427
  24. SORAFENIB (RAF KINASE INHIBITOR) [Suspect]
     Dosage: UNK
  25. GASMOTIN [Concomitant]
     Dosage: 5 MG, TID
     Route: 048
     Dates: start: 20110106, end: 20110126
  26. MULTI-VITAMINS [Concomitant]
     Indication: MEDICAL DIET
     Dosage: 1 DF, QD
     Route: 048
     Dates: start: 20101207, end: 20101214
  27. DURAGESIC-100 [Concomitant]
     Indication: LIVER CARCINOMA RUPTURED
     Dosage: 25 ?G, BIW
     Dates: start: 20101221, end: 20101223
  28. DURAGESIC-100 [Concomitant]
     Dosage: 25 ?G, Q72HR
     Route: 062
     Dates: start: 20110405, end: 20110422
  29. CASTOR OIL [Concomitant]
     Indication: SURGERY
     Dosage: 50 ML, QD
     Route: 048
     Dates: start: 20101214, end: 20101214
  30. VALIUM [Concomitant]
     Indication: SURGERY
     Dosage: 5 MG, QD
     Route: 048
     Dates: start: 20101214, end: 20101214
  31. MIDAZOLAM HCL [Concomitant]
     Indication: SURGERY
     Dosage: 3 MG, QD
     Route: 030
     Dates: start: 20101215, end: 20101215
  32. ACETYLCYSTEINE [Concomitant]
     Dosage: 200 MG, TID
     Route: 048
     Dates: start: 20101218, end: 20101219
  33. ACETYLCYSTEINE [Concomitant]
     Dosage: 200 MG, TID
     Route: 048
     Dates: start: 20101221, end: 20101229
  34. SMECTA [SMECTITE] [Concomitant]
     Indication: PROPHYLAXIS
     Dosage: 20 ML, BID
     Route: 048
     Dates: start: 20101230, end: 20110112
  35. NORMIX [Concomitant]
     Indication: PROPHYLAXIS
     Dosage: 400 MG, BID
     Route: 050
     Dates: start: 20110130
  36. MORPHINE SULFATE [Concomitant]
     Dosage: 0.5 MG, Q1HR
     Route: 042
     Dates: start: 20110405, end: 20110406
  37. ACTIQ [Concomitant]
     Indication: LIVER CARCINOMA RUPTURED
     Dosage: 0.2 MG, QD
     Route: 048
     Dates: start: 20110228, end: 20110310
  38. NALOXONE [Concomitant]
     Indication: MUSCULAR WEAKNESS
     Dosage: 0.2 MG, QD
     Route: 042
     Dates: start: 20110227, end: 20110227
  39. OCODONE CR [Concomitant]
     Indication: LIVER CARCINOMA RUPTURED
     Dosage: 110 MG, BID
     Route: 048
     Dates: start: 20110403, end: 20110406
  40. METOCLOPRAMIDE HYDROCHLORIDE [Concomitant]
     Indication: NAUSEA
     Dosage: 10 MG, QD
     Route: 042
     Dates: start: 20110406, end: 20110423
  41. ALMAGEL F [Concomitant]
     Indication: GASTRITIS
     Dosage: 15 ML, TID
     Route: 048
     Dates: start: 20110407, end: 20110425
  42. MEK INHIBITOR (DIHYDROXYPROP-DIFLU-METHOXYPHEN-CYCLOPROPA-SULFAMI) [Suspect]
     Dosage: 30 MG, QD
     Dates: start: 20110304, end: 20110324
  43. SORAFENIB (RAF KINASE INHIBITOR) [Suspect]
     Dosage: 200 MG, QD
     Route: 048
     Dates: start: 20110111, end: 20110111
  44. SORAFENIB (RAF KINASE INHIBITOR) [Suspect]
     Dosage: 400 MG, BID
     Route: 048
     Dates: start: 20110225, end: 20110302
  45. GASMOTIN [Concomitant]
     Dosage: 5 MG, TID
     Route: 048
     Dates: start: 20101221, end: 20101229
  46. PANTOPRAZOLE SODIUM [Concomitant]
     Dosage: 40 MG, QD
     Route: 042
     Dates: start: 20110404, end: 20110404
  47. FAMOTIDINE [Concomitant]
     Indication: SURGERY
     Dosage: 20 MG, BID
     Route: 042
     Dates: start: 20101215, end: 20101216
  48. MORPHINE SULFATE [Concomitant]
     Dosage: 0.75 MG, Q1HR
     Route: 042
     Dates: start: 20110403, end: 20110404
  49. SORAFENIB (RAF KINASE INHIBITOR) [Suspect]
     Dosage: 400 MG, QD
     Route: 048
     Dates: start: 20110113, end: 20110127
  50. GASMOTIN [Concomitant]
     Indication: OESOPHAGITIS
     Dosage: 5 MG, TID
     Route: 048
     Dates: start: 20101207, end: 20101214
  51. TRAMACET [PARACETAMOL,TRAMADOL] [Concomitant]
     Dosage: 37.5 MG, TID
     Route: 048
     Dates: start: 20101218, end: 20101219
  52. PANTOPRAZOLE SODIUM [Concomitant]
     Dosage: 40 MG, QD
     Route: 042
     Dates: start: 20110215
  53. DURAGESIC-100 [Concomitant]
     Dosage: 50 ?G, Q72HR
     Route: 062
     Dates: start: 20110403, end: 20110430
  54. ADELAVIN [Concomitant]
     Indication: SURGERY
     Dosage: 2 ML, QD
     Route: 042
     Dates: start: 20101215, end: 20101216
  55. BOTROPASE [Concomitant]
     Dosage: 2 ML, BID
     Route: 042
     Dates: start: 20110129, end: 20110129
  56. PROPOFOL [Concomitant]
     Indication: SURGERY
     Dosage: 120 MG, QD
     Route: 042
     Dates: start: 20101215, end: 20101215
  57. KETORACIN [Concomitant]
     Indication: ABDOMINAL PAIN
     Dosage: 30 MG, QD
     Route: 042
     Dates: start: 20101215, end: 20101216
  58. LIVACT [AMINO ACIDS NOS] [Concomitant]
     Indication: PROPHYLAXIS
     Dosage: 4.15 G, TID
     Route: 048
     Dates: start: 20101230, end: 20110105
  59. LIVACT [AMINO ACIDS NOS] [Concomitant]
     Dosage: 4.15 G, TID
     Route: 048
     Dates: start: 20110113, end: 20110126
  60. NORVASC [Concomitant]
     Indication: PROPHYLAXIS
     Dosage: 5 MG, QD
     Route: 048
     Dates: start: 20110106, end: 20110110
  61. MEGESTROL ACETATE [Concomitant]
     Dosage: 20 ML, QD
     Route: 048
     Dates: start: 20110415, end: 20110425
  62. MEK INHIBITOR (DIHYDROXYPROP-DIFLU-METHOXYPHEN-CYCLOPROPA-SULFAMI) [Suspect]
     Indication: HEPATIC NEOPLASM MALIGNANT
     Dosage: 50 MG, QD
     Route: 048
     Dates: start: 20101230, end: 20101230
  63. SORAFENIB (RAF KINASE INHIBITOR) [Suspect]
     Dosage: 600 MG (200 MG/400 MG), QD
     Route: 048
     Dates: start: 20101231, end: 20110102
  64. SORAFENIB (RAF KINASE INHIBITOR) [Suspect]
     Dosage: 400 MG, QD
     Route: 048
     Dates: start: 20110303, end: 20110323
  65. GASMOTIN [Concomitant]
     Dosage: 5 MG, BID
     Route: 048
     Dates: start: 20101217, end: 20101217
  66. LEVOVIR [Concomitant]
     Indication: HEPATITIS B
     Dosage: 30 MG, QD
     Route: 048
     Dates: start: 20101207, end: 20101214
  67. LEVOVIR [Concomitant]
     Dosage: 30 MG, QD
     Route: 048
     Dates: start: 20101217, end: 20101219
  68. MULTI-VITAMINS [Concomitant]
     Dosage: 1 DF, QD
     Route: 048
     Dates: start: 20101221, end: 20110128
  69. LAMINA-G [Concomitant]
     Indication: OESOPHAGITIS
     Dosage: 40 ML, TID
     Route: 048
     Dates: start: 20101209, end: 20101214
  70. LAMINA-G [Concomitant]
     Dosage: 50 ML, QD
     Route: 048
     Dates: start: 20101220, end: 20101220
  71. VITAMIN K1 [Concomitant]
     Indication: SURGERY
     Dosage: 10 MG, BID
     Route: 030
     Dates: start: 20101215, end: 20101215
  72. VITAMIN K1 [Concomitant]
     Dosage: 10 MG, QD
     Route: 030
     Dates: start: 20101216, end: 20101216
  73. LIDOCAINE [Concomitant]
     Indication: SURGERY
     Dosage: UNK UNK, QD
     Route: 061
     Dates: start: 20101215, end: 20101215
  74. DIPEPTIVEN [Concomitant]
     Indication: MEDICAL DIET
     Dosage: 100 ML, QD
     Route: 042
     Dates: start: 20101216, end: 20101216
  75. TRAMADOL HCL [Concomitant]
     Dosage: 50 MG, QD
     Route: 030
     Dates: start: 20110129, end: 20110129
  76. TRAMADOL HCL [Concomitant]
     Dosage: 50 MG, BID
     Route: 030
     Dates: start: 20110130
  77. ULTRAVIST 150 [Concomitant]
     Dosage: 140 ML, QD
     Route: 042
     Dates: start: 20110215, end: 20110215
  78. ADALAT [Concomitant]
     Dosage: 30 MG, QD
     Route: 048
     Dates: start: 20110131
  79. MEK INHIBITOR (DIHYDROXYPROP-DIFLU-METHOXYPHEN-CYCLOPROPA-SULFAMI) [Suspect]
     Dosage: 50 MG, BID
     Route: 048
     Dates: start: 20101231, end: 20110128
  80. SORAFENIB (RAF KINASE INHIBITOR) [Suspect]
     Dosage: 400 MG, QD
     Route: 048
     Dates: start: 20110106, end: 20110110
  81. SORAFENIB (RAF KINASE INHIBITOR) [Suspect]
     Dosage: 400 MG, QD
     Route: 048
     Dates: start: 20110224, end: 20110224
  82. ALBIS [Concomitant]
     Indication: GASTRITIS
     Dosage: 1 DF, QD
     Route: 048
     Dates: start: 20101217, end: 20101217
  83. ALBIS [Concomitant]
     Dosage: 1 DF, BID
     Route: 048
     Dates: start: 20101221, end: 20110128
  84. GASMOTIN [Concomitant]
     Dosage: 5 MG, TID
     Route: 048
     Dates: start: 20101218, end: 20101219
  85. TRAMACET [PARACETAMOL,TRAMADOL] [Concomitant]
     Indication: ABDOMINAL PAIN
     Dosage: 37.5 MG, TID
     Route: 048
     Dates: start: 20101207, end: 20101214
  86. PANTOPRAZOLE SODIUM [Concomitant]
     Dosage: 40 MG, QD
     Route: 042
     Dates: start: 20110129
  87. DURAGESIC-100 [Concomitant]
     Indication: ABDOMINAL PAIN
     Dosage: 12.5 ?G, QD
     Dates: start: 20101213, end: 20101213
  88. FOY [Concomitant]
     Indication: SURGERY
     Dosage: 1500 MG, QD
     Route: 042
     Dates: start: 20101214, end: 20101214
  89. ACETYLCYSTEINE [Concomitant]
     Indication: PROPHYLAXIS
     Dosage: 200 MG, QD
     Route: 048
     Dates: start: 20101220, end: 20101220
  90. PRIMOVIST [Concomitant]
     Indication: NUCLEAR MAGNETIC RESONANCE IMAGING
     Dosage: 10 CC, QD
     Route: 042
     Dates: start: 20101213, end: 20101213
  91. ULTRAVIST 150 [Concomitant]
     Dosage: 140 ML, QD
     Route: 042
     Dates: start: 20110129, end: 20110129
  92. ALLEGRA [Concomitant]
     Indication: PALMAR-PLANTAR ERYTHRODYSAESTHESIA SYNDROME
     Dosage: 120 MG, BID
     Route: 048
     Dates: start: 20110113, end: 20110128
  93. ADALAT [Concomitant]
     Indication: HYPERTENSION
     Dosage: 60 MG, QD
     Route: 048
     Dates: start: 20110130
  94. SILYMARIN [Concomitant]
     Indication: MEDICAL DIET
     Dosage: 500 ML, QD
     Route: 042
     Dates: start: 20110130
  95. MORPHINE SULFATE [Concomitant]
     Indication: HEPATIC FAILURE
     Dosage: 1 MG, Q1HR
     Route: 042
     Dates: start: 20110331, end: 20110402
  96. ACTIQ [Concomitant]
     Indication: ABDOMINAL PAIN
     Dosage: 0.2 MG, TID
     Route: 048
     Dates: start: 20110224, end: 20110227
  97. ACTIQ [Concomitant]
     Dosage: 0.6 MG, TID
     Route: 048
     Dates: start: 20110401, end: 20110425
  98. MEK INHIBITOR (DIHYDROXYPROP-DIFLU-METHOXYPHEN-CYCLOPROPA-SULFAMI) [Suspect]
     Dosage: 30 MG, BID
     Dates: start: 20110304, end: 20110323
  99. ALBIS [Concomitant]
     Indication: OESOPHAGITIS
     Dosage: 1 DF, BID
     Route: 048
     Dates: start: 20101207, end: 20101214
  100. ALBIS [Concomitant]
     Dosage: 1 DF, BID
     Route: 048
     Dates: start: 20101218, end: 20101219
  101. LEVOVIR [Concomitant]
     Dosage: 30 MG, QD
     Route: 048
     Dates: start: 20101221, end: 20110128
  102. PANTOPRAZOLE SODIUM [Concomitant]
     Indication: GASTRITIS
     Dosage: 40 MG, QD
     Route: 042
     Dates: start: 20101213, end: 20101214
  103. LAMINA-G [Concomitant]
     Dosage: 50 ML, TID
     Route: 048
     Dates: start: 20101221, end: 20101223
  104. METOCLOPRAMIDE HYDROCHLORIDE [Concomitant]
     Indication: OESOPHAGITIS
     Dosage: 10 MG, QD
     Route: 042
     Dates: start: 20101214, end: 20101214
  105. ACETYLCYSTEINE [Concomitant]
     Indication: SURGERY
     Dosage: 2 ML, BID
     Route: 042
     Dates: start: 20101215, end: 20101215
  106. BOTROPASE [Concomitant]
     Indication: SURGERY
     Dosage: 2 ML, BID
     Route: 042
     Dates: start: 20101215, end: 20101215
  107. PYRIDOSTIGMINE BROMIDE [Concomitant]
     Indication: SURGERY
     Dosage: 20 MG, QD
     Route: 042
     Dates: start: 20101215, end: 20101215
  108. LIDOCAINE [Concomitant]
     Dosage: UNK UNK, QD
     Route: 058
     Dates: start: 20110129, end: 20110129
  109. CEFOTAXIME [Concomitant]
     Indication: SURGERY
     Dosage: 1 G, BID
     Route: 042
     Dates: start: 20101217, end: 20101217
  110. CEFOTAXIME [Concomitant]
     Dosage: 1 G, QD
     Route: 042
     Dates: start: 20101218, end: 20101218
  111. CEFOTAXIME [Concomitant]
     Dosage: 2 G, TID
     Route: 042
     Dates: start: 20101218, end: 20101221
  112. TRAMADOL HCL [Concomitant]
     Indication: ABDOMINAL PAIN
     Dosage: 50 MG, TID
     Route: 042
     Dates: start: 20101220, end: 20101220
  113. NUTRIFLEX LIPID [AMINO ACIDS NOS,CARBOHYDRATES NOS,ELECTROLYTES NO [Concomitant]
     Indication: MEDICAL DIET
     Dosage: 1.250 ML, QD
     Route: 042
     Dates: start: 20101220, end: 20101220
  114. LIVACT [AMINO ACIDS NOS] [Concomitant]
     Dosage: 4.15 G, BID
     Route: 048
     Dates: start: 20110127, end: 20110128
  115. NORVASC [Concomitant]
     Indication: HYPERTENSION
     Dosage: 5 MG, QD
     Route: 048
     Dates: start: 20110103, end: 20110104
  116. PETHIDINE HCL [Concomitant]
     Indication: LIVER CARCINOMA RUPTURED
     Dosage: 25 MG, QD
     Route: 042
     Dates: start: 20110331, end: 20110331
  117. ALBUMIN (HUMAN) [Concomitant]
     Indication: PARACENTESIS
  118. MORPHINE SULFATE [Concomitant]
     Dosage: 5 MG, QD
     Route: 042
     Dates: start: 20110426, end: 20110426
  119. HEPATAMINE [Concomitant]
     Dosage: 500 ML, QD
     Route: 042
     Dates: start: 20110427, end: 20110427
  120. PENNEL [Concomitant]
     Indication: ASPARTATE AMINOTRANSFERASE INCREASED
     Dosage: 1 DF, TID
     Route: 048
     Dates: start: 20110302, end: 20110425
  121. INDENOLOL [Concomitant]
     Dosage: 10 MG, BID
     Route: 048
     Dates: start: 20110410, end: 20110415
  122. ALDACTONE [Concomitant]
     Dosage: 25 MG, QD
     Route: 048
     Dates: start: 20110414, end: 20110414
  123. MEK INHIBITOR (DIHYDROXYPROP-DIFLU-METHOXYPHEN-CYCLOPROPA-SULFAMI) [Suspect]
     Dosage: 50 MG, BID
     Route: 048
     Dates: start: 20110225, end: 20110302
  124. MEK INHIBITOR (DIHYDROXYPROP-DIFLU-METHOXYPHEN-CYCLOPROPA-SULFAMI) [Suspect]
     Dosage: 50/30 MG, QD
     Route: 048
     Dates: start: 20110303, end: 20110303
  125. GASMOTIN [Concomitant]
     Dosage: 5 MG, QD
     Route: 048
     Dates: start: 20101220, end: 20101220
  126. GASMOTIN [Concomitant]
     Dosage: 5 MG, BID
     Route: 048
     Dates: start: 20110127, end: 20110128
  127. MEICELIN [Concomitant]
     Indication: SURGERY
     Dosage: 1 G, TID
     Route: 042
     Dates: start: 20101215, end: 20101216
  128. ORNITHINE ASPARTATE [Concomitant]
     Indication: SURGERY
     Dosage: 20 ML, QD
     Route: 042
     Dates: start: 20101215, end: 20101216
  129. BROMEL [Concomitant]
     Indication: SURGERY
     Dosage: 2.2 ML, BID
     Route: 042
     Dates: start: 20101215, end: 20101215
  130. BOTROPASE [Concomitant]
     Dosage: 2 ML, UNK
     Route: 042
     Dates: start: 20110130
  131. GLYCOPYRROLATE [Concomitant]
     Indication: SURGERY
     Dosage: 0.4 MG, QD
     Route: 042
     Dates: start: 20101215, end: 20101215
  132. PROPOFOL [Concomitant]
     Indication: ENDOSCOPY
     Dosage: 80 MG, QD
     Route: 042
     Dates: start: 20110208, end: 20110208
  133. ULTRAVIST 150 [Concomitant]
     Indication: NUCLEAR MAGNETIC RESONANCE IMAGING
     Dosage: 140 ML, QD
     Route: 042
     Dates: start: 20101221, end: 20101221
  134. ULTRAVIST 150 [Concomitant]
     Dosage: 140 ML, UNK
     Route: 042
     Dates: start: 20110201, end: 20110201
  135. LIVACT [AMINO ACIDS NOS] [Concomitant]
     Dosage: 4.15 G, BID
     Route: 048
     Dates: start: 20110106, end: 20110112
  136. PETHIDINE HCL [Concomitant]
     Indication: ABDOMINAL PAIN
     Dosage: 50 MG, BID
     Route: 042
     Dates: start: 20110129, end: 20110129
  137. DUPHALAC [Concomitant]
     Indication: PROPHYLAXIS
     Dosage: 30 ML, BID
     Route: 050
     Dates: start: 20110130
  138. ALBUMIN (HUMAN) [Concomitant]
     Indication: HYPOALBUMINAEMIA
     Dosage: 100 ML, QD
     Route: 042
     Dates: start: 20110129
  139. LASIX [Concomitant]
     Indication: HYPOALBUMINAEMIA
     Dosage: 1 ML, QD
     Route: 042
     Dates: start: 20110129, end: 20110129
  140. MORPHINE SULFATE [Concomitant]
     Dosage: 1 MG, Q1HR
     Route: 042
     Dates: start: 20110427, end: 20110430
  141. HEPATAMINE [Concomitant]
     Indication: MEDICAL DIET
     Dosage: 500 ML, QD
     Route: 042
     Dates: start: 20110215

REACTIONS (6)
  - HEPATIC FAILURE [None]
  - DIARRHOEA [None]
  - HYPOKALAEMIA [None]
  - ABDOMINAL PAIN [None]
  - LIVER CARCINOMA RUPTURED [None]
  - ASPARTATE AMINOTRANSFERASE INCREASED [None]
